FAERS Safety Report 17358256 (Version 2)
Quarter: 2020Q3

REPORT INFORMATION
  Report Type: Spontaneous
  Country: US (occurrence: US)
  Receive Date: 20200201
  Receipt Date: 20200819
  Transmission Date: 20201102
  Serious: No
  Sender: FDA-Public Use
  Company Number: US-TEVA-2020-US-1177556

PATIENT
  Sex: Male

DRUGS (1)
  1. LIDOCAINE TEVA [Suspect]
     Active Substance: LIDOCAINE
     Indication: BACK PAIN
     Dosage: FORM OF ADMIN: PATCH
     Route: 065

REACTIONS (4)
  - Rash [Unknown]
  - Product substitution issue [Unknown]
  - Product adhesion issue [Unknown]
  - Application site pruritus [Not Recovered/Not Resolved]
